FAERS Safety Report 17570944 (Version 8)
Quarter: 2020Q4

REPORT INFORMATION
  Report Type: Spontaneous
  Country: US (occurrence: US)
  Receive Date: 20200323
  Receipt Date: 20201201
  Transmission Date: 20210113
  Serious: No
  Sender: FDA-Public Use
  Company Number: US-PFIZER INC-2020122430

PATIENT
  Age: 62 Year
  Sex: Female

DRUGS (5)
  1. XELJANZ XR [Suspect]
     Active Substance: TOFACITINIB CITRATE
     Indication: RHEUMATOID ARTHRITIS
     Dosage: 11 MG, DAILY
     Route: 048
     Dates: start: 202002
  2. XELJANZ XR [Suspect]
     Active Substance: TOFACITINIB CITRATE
     Dosage: 11 MG, DAILY
     Route: 048
     Dates: start: 20200417
  3. METHOTREXATE. [Concomitant]
     Active Substance: METHOTREXATE
     Dosage: UNK
     Dates: start: 20200803
  4. HUMIRA [Concomitant]
     Active Substance: ADALIMUMAB
     Dosage: UNK
  5. XELJANZ XR [Suspect]
     Active Substance: TOFACITINIB CITRATE
     Dosage: 11 MG, ALTERNATE DAY
     Route: 048

REACTIONS (20)
  - Product dose omission in error [Unknown]
  - Anxiety [Unknown]
  - Fatigue [Unknown]
  - Weight decreased [Unknown]
  - Seasonal allergy [Unknown]
  - Pain in extremity [Unknown]
  - Insomnia [Unknown]
  - Alopecia [Unknown]
  - Asthenia [Unknown]
  - Middle insomnia [Unknown]
  - Hyperhidrosis [Unknown]
  - Peripheral swelling [Unknown]
  - Drug ineffective [Unknown]
  - Swelling of eyelid [Unknown]
  - Blepharal pigmentation [Unknown]
  - Rash [Unknown]
  - Depressed mood [Unknown]
  - Confusional state [Unknown]
  - Condition aggravated [Unknown]
  - Chest discomfort [Unknown]

NARRATIVE: CASE EVENT DATE: 2020
